FAERS Safety Report 7101297-X (Version None)
Quarter: 2010Q4

REPORT INFORMATION
  Report Type: 
  Country: None (occurrence: None)
  Receive Date: 20101105
  Receipt Date: 20101022
  Transmission Date: 20110411
  Serious: Yes (Hospitalization)
  Sender: FDA-Public Use
  Company Number: 2010004562

PATIENT
  Age: 82 Year
  Sex: Female

DRUGS (1)
  1. TARCEVA [Suspect]
     Indication: LUNG NEOPLASM MALIGNANT
     Dosage: (100 MG, QD), ORAL
     Route: 048
     Dates: start: 20101006, end: 20101012

REACTIONS (5)
  - GASTROINTESTINAL HYPOMOTILITY [None]
  - NAUSEA [None]
  - PULMONARY THROMBOSIS [None]
  - URINARY TRACT INFECTION [None]
  - VOMITING [None]
